FAERS Safety Report 20381261 (Version 1)
Quarter: 2022Q1

REPORT INFORMATION
  Report Type: Spontaneous
  Country: US (occurrence: US)
  Receive Date: 20220127
  Receipt Date: 20220127
  Transmission Date: 20220424
  Serious: No
  Sender: FDA-Public Use
  Company Number: US-SANOFI-00941271

PATIENT

DRUGS (3)
  1. DUPIXENT [Suspect]
     Active Substance: DUPILUMAB
     Indication: Blood immunoglobulin G increased
  2. DUPIXENT [Suspect]
     Active Substance: DUPILUMAB
     Indication: Hypersensitivity pneumonitis
  3. DUPIXENT [Suspect]
     Active Substance: DUPILUMAB
     Indication: Respiratory failure

REACTIONS (1)
  - Product prescribing issue [Unknown]
